FAERS Safety Report 9109760 (Version 1)
Quarter: 2013Q1

REPORT INFORMATION
  Report Type: Spontaneous
  Country: US (occurrence: US)
  Receive Date: 20130222
  Receipt Date: 20130222
  Transmission Date: 20140127
  Serious: No
  Sender: FDA-Public Use
  Company Number: US-TEVA-335898USA

PATIENT
  Age: 65 Year
  Sex: Male

DRUGS (3)
  1. FLUOROURACIL [Suspect]
  2. OXALIPLATIN [Suspect]
  3. FOLINIC ACID [Suspect]

REACTIONS (1)
  - Mental status changes [Recovered/Resolved]
